APPROVED DRUG PRODUCT: DOCETAXEL
Active Ingredient: DOCETAXEL
Strength: 20MG/2ML (10MG/ML)
Dosage Form/Route: INJECTABLE;INJECTION
Application: A215744 | Product #001 | TE Code: AP
Applicant: ALEMBIC PHARMACEUTICALS LTD
Approved: Feb 28, 2023 | RLD: No | RS: No | Type: RX